FAERS Safety Report 21672547 (Version 1)
Quarter: 2022Q4

REPORT INFORMATION
  Report Type: Report from Study
  Country: US (occurrence: US)
  Receive Date: 20221202
  Receipt Date: 20221202
  Transmission Date: 20230113
  Serious: Yes (Other)
  Sender: FDA-Public Use
  Company Number: US-TEVA-2022-US-2831792

PATIENT
  Age: 26 Year
  Sex: Female

DRUGS (1)
  1. CLARAVIS [Suspect]
     Active Substance: ISOTRETINOIN
     Indication: Product used for unknown indication
     Dosage: 60 MILLIGRAM
     Route: 065
     Dates: start: 20220701

REACTIONS (10)
  - Emotional disorder [Unknown]
  - Intracranial pressure increased [Unknown]
  - Metamorphopsia [Unknown]
  - Headache [Unknown]
  - Eye swelling [Unknown]
  - Nausea [Unknown]
  - Arthralgia [Unknown]
  - Dry skin [Unknown]
  - Cough [Unknown]
  - Laryngitis [Unknown]

NARRATIVE: CASE EVENT DATE: 20220101
